FAERS Safety Report 13795661 (Version 1)
Quarter: 2017Q3

REPORT INFORMATION
  Report Type: Not Available
  Country: US (occurrence: US)
  Receive Date: 20170726
  Receipt Date: 20170726
  Transmission Date: 20171127
  Serious: No
  Sender: FDA-Public Use
  Company Number: US-NEUROCRINE BIOSCIENCES INC.-2017NBI00283

PATIENT
  Age: 61 Year
  Sex: Female
  Weight: 97.16 kg

DRUGS (8)
  1. SYNTHROID [Concomitant]
     Active Substance: LEVOTHYROXINE SODIUM
  2. INGREZZA [Suspect]
     Active Substance: VALBENAZINE
     Indication: TARDIVE DYSKINESIA
     Route: 048
     Dates: start: 20170601, end: 201706
  3. INGREZZA [Suspect]
     Active Substance: VALBENAZINE
     Dosage: 1 IN THE MORNING, ONE IN THE EVENING
     Route: 048
     Dates: start: 201706
  4. CLONAZEPAM. [Concomitant]
     Active Substance: CLONAZEPAM
  5. DEPAKOTE GENERIC [Concomitant]
     Active Substance: DIVALPROEX SODIUM
  6. LAMICTAL GENERIC [Concomitant]
     Active Substance: LAMOTRIGINE
  7. TRAZODONE [Concomitant]
     Active Substance: TRAZODONE HYDROCHLORIDE
  8. VESICARE [Concomitant]
     Active Substance: SOLIFENACIN SUCCINATE
     Dosage: EVERY OTHER DAY

REACTIONS (4)
  - Off label use [Unknown]
  - Myalgia [Unknown]
  - Somnolence [Recovering/Resolving]
  - Arthralgia [Unknown]

NARRATIVE: CASE EVENT DATE: 201706
